FAERS Safety Report 23418324 (Version 3)
Quarter: 2024Q1

REPORT INFORMATION
  Report Type: Spontaneous
  Country: US (occurrence: US)
  Receive Date: 20240118
  Receipt Date: 20240315
  Transmission Date: 20240410
  Serious: No
  Sender: FDA-Public Use
  Company Number: US-BRISTOL-MYERS SQUIBB COMPANY-2024-009546

PATIENT
  Age: 59 Year
  Sex: Male
  Weight: 90.72 kg

DRUGS (1)
  1. REVLIMID [Suspect]
     Active Substance: LENALIDOMIDE
     Indication: Plasma cell myeloma
     Route: 048
     Dates: start: 20230617

REACTIONS (4)
  - Tachycardia [Recovering/Resolving]
  - Constipation [Unknown]
  - Fatigue [Unknown]
  - Pain [Unknown]
